FAERS Safety Report 17426430 (Version 1)
Quarter: 2020Q1

REPORT INFORMATION
  Report Type: Spontaneous
  Country: TR (occurrence: TR)
  Receive Date: 20200218
  Receipt Date: 20200218
  Transmission Date: 20200409
  Serious: Yes (Other)
  Sender: FDA-Public Use
  Company Number: TR-SUN PHARMACEUTICAL INDUSTRIES LTD-2020RR-237202

PATIENT
  Age: 3 Month
  Sex: Male
  Weight: 3.8 kg

DRUGS (1)
  1. ISOTRETINOIN. [Suspect]
     Active Substance: ISOTRETINOIN
     Indication: ACNE
     Dosage: 0.5 MILLIGRAM/KILOGRAM, DAILY
     Route: 064

REACTIONS (8)
  - Cleft palate [Not Recovered/Not Resolved]
  - Micrognathia [Unknown]
  - Dandy-Walker syndrome [Unknown]
  - Eyelid ptosis [Unknown]
  - Atrial septal defect [Unknown]
  - Foetal exposure during pregnancy [Unknown]
  - Hydrocephalus [Unknown]
  - Cerebellar hypoplasia [Unknown]
